FAERS Safety Report 11788925 (Version 1)
Quarter: 2015Q4

REPORT INFORMATION
  Report Type: Spontaneous
  Country: NZ (occurrence: NZ)
  Receive Date: 20151201
  Receipt Date: 20151201
  Transmission Date: 20160305
  Serious: Yes (Other)
  Sender: FDA-Public Use
  Company Number: NZ-WATSON-2015-18882

PATIENT
  Age: 55 Year
  Sex: Male

DRUGS (2)
  1. ALENDRONIC ACID (UNKNOWN) [Suspect]
     Active Substance: ALENDRONIC ACID
     Indication: FOOT FRACTURE
     Dosage: 70 MG, 1/WEEK
     Route: 065
  2. ALENDRONIC ACID (UNKNOWN) [Suspect]
     Active Substance: ALENDRONIC ACID
     Dosage: 70 MG, 1/TWO WEEKS
     Route: 065

REACTIONS (1)
  - Osteomalacia [Recovering/Resolving]

NARRATIVE: CASE EVENT DATE: 201005
